FAERS Safety Report 7272496-1 (Version None)
Quarter: 2011Q1

REPORT INFORMATION
  Report Type: 
  Country: None (occurrence: None)
  Receive Date: 20110203
  Receipt Date: 20110124
  Transmission Date: 20110831
  Serious: Yes (Death, Hospitalization)
  Sender: FDA-Public Use
  Company Number: SE-ACTELION-A-CH2011-43871

PATIENT
  Sex: Female

DRUGS (4)
  1. ARB [Suspect]
  2. SPIRONOLACTONE [Suspect]
     Dosage: UNK
     Dates: start: 20101129
  3. REVATIO [Concomitant]
  4. TRACLEER [Suspect]
     Indication: PULMONARY HYPERTENSION
     Dosage: 62.5 MG, BID
     Route: 048
     Dates: start: 20101130

REACTIONS (7)
  - RENAL FAILURE [None]
  - BLOOD CREATININE INCREASED [None]
  - ACIDOSIS [None]
  - C-REACTIVE PROTEIN INCREASED [None]
  - DIARRHOEA [None]
  - CONDITION AGGRAVATED [None]
  - GENERALISED OEDEMA [None]
